FAERS Safety Report 15234501 (Version 1)
Quarter: 2018Q3

REPORT INFORMATION
  Report Type: Spontaneous
  Country: ES (occurrence: ES)
  Receive Date: 20180803
  Receipt Date: 20180803
  Transmission Date: 20181010
  Serious: Yes (Hospitalization)
  Sender: FDA-Public Use
  Company Number: ES-TEVA-2018-ES-933560

PATIENT
  Age: 84 Year
  Sex: Female

DRUGS (4)
  1. SINTROM [Suspect]
     Active Substance: ACENOCOUMAROL
     Indication: ATRIAL FIBRILLATION
     Dosage: 1?0?0
     Route: 048
  2. DIGOXINA 0,25MG [Concomitant]
     Indication: ATRIAL FIBRILLATION
     Dosage: 1?0?0
     Route: 048
  3. OMEPRAZOLE 20MG [Suspect]
     Active Substance: OMEPRAZOLE
     Dosage: 1?0?0
     Route: 048
  4. PARACETAMOL 1G [Concomitant]
     Active Substance: ACETAMINOPHEN
     Indication: PAIN
     Dosage: 1?1?1
     Route: 048
     Dates: start: 20171013

REACTIONS (1)
  - Upper gastrointestinal haemorrhage [Recovered/Resolved]
